FAERS Safety Report 23298786 (Version 1)
Quarter: 2023Q4

REPORT INFORMATION
  Report Type: Spontaneous
  Country: US (occurrence: US)
  Receive Date: 20231214
  Receipt Date: 20231214
  Transmission Date: 20240109
  Serious: No
  Sender: FDA-Public Use
  Company Number: US-STRIDES ARCOLAB LIMITED-2022SP016767

PATIENT
  Age: 3 Day
  Sex: Female

DRUGS (3)
  1. PROPRANOLOL [Suspect]
     Active Substance: PROPRANOLOL HYDROCHLORIDE
     Indication: Ulcer
     Dosage: 2 MILLIGRAM/KILOGRAM; PER DAY
     Route: 048
  2. RAPAMYCIN [Concomitant]
     Active Substance: SIROLIMUS
     Indication: Malformation venous
     Dosage: UNK
     Route: 061
  3. TIMOLOL [Concomitant]
     Active Substance: TIMOLOL
     Indication: Ulcer
     Dosage: UNK; (FORMULATION: GEL FORMING SOLUTION)
     Route: 065

REACTIONS (1)
  - Off label use [Unknown]
